FAERS Safety Report 16104683 (Version 1)
Quarter: 2019Q1

REPORT INFORMATION
  Report Type: Spontaneous
  Country: IT (occurrence: IT)
  Receive Date: 20190322
  Receipt Date: 20190322
  Transmission Date: 20190418
  Serious: Yes (Hospitalization)
  Sender: FDA-Public Use
  Company Number: IT-TEVA-2019-IT-1027387

PATIENT
  Age: 91 Year
  Sex: Female
  Weight: 60 kg

DRUGS (8)
  1. ALLOPURINOL. [Suspect]
     Active Substance: ALLOPURINOL
     Dosage: 150 MILLIGRAM DAILY;
     Route: 048
  2. LASIX [Concomitant]
     Active Substance: FUROSEMIDE
     Dosage: 125 MILLIGRAM DAILY;
     Route: 048
  3. COUMADIN [Suspect]
     Active Substance: WARFARIN SODIUM
     Route: 048
  4. TACHIDOL [Concomitant]
     Active Substance: ACETAMINOPHEN\CODEINE PHOSPHATE
     Dosage: 1 DOSAGE FORMS DAILY;
     Route: 048
  5. TARDYFER [Concomitant]
     Active Substance: FERROUS SULFATE
     Dosage: 80 MILLIGRAM DAILY;
     Route: 048
  6. LUVION 50 MG COMPRESSE [Concomitant]
     Active Substance: CANRENONE
     Dosage: 50 MILLIGRAM DAILY;
     Route: 048
  7. PANTOPRAZOLE SODIUM SESQUIHYDRATE [Concomitant]
     Active Substance: PANTOPRAZOLE SODIUM
     Dosage: 20 MILLIGRAM DAILY;
     Route: 048
  8. TILDIEM 120 MG COMPRESSE A RILASCIO PROLUNGATO [Concomitant]
     Dosage: 240 MILLIGRAM DAILY;
     Route: 048

REACTIONS (2)
  - Anaemia [Recovered/Resolved]
  - Rectal haemorrhage [Recovered/Resolved]

NARRATIVE: CASE EVENT DATE: 20181217
